FAERS Safety Report 5101110-6 (Version None)
Quarter: 2006Q3

REPORT INFORMATION
  Report Type: 
  Country: None (occurrence: None)
  Receive Date: 20060911
  Receipt Date: 20060609
  Transmission Date: 20061208
  Serious: Yes (Hospitalization, Other)
  Sender: FDA-Public Use
  Company Number: PHEH2006US07641

PATIENT
  Age: 71 Year
  Sex: Female
  Weight: 51.7 kg

DRUGS (19)
  1. NEXIUM [Concomitant]
     Dosage: 40MG QD
  2. ZOFRAN [Concomitant]
     Dosage: 32MG UNK
     Route: 042
  3. DEXAMETHASONE [Concomitant]
     Dosage: 20MG UNK
  4. GEMZAR [Concomitant]
     Dosage: 950MG
     Route: 042
     Dates: start: 20060403
  5. AROMASIN [Concomitant]
  6. LISINOPRIL [Concomitant]
     Dosage: 32.5MG QD
  7. COREG [Concomitant]
     Dosage: 12.5 MG BID
  8. SIMVASTATIN [Concomitant]
     Dosage: 40 UNK, UNK
  9. POTASSIUM CHLORIDE [Concomitant]
  10. FOLIC ACID [Concomitant]
  11. MEGACE [Concomitant]
  12. ZOMETA [Suspect]
     Indication: METASTASES TO BONE
     Dosage: 4MG 4WKS
     Dates: start: 20050815, end: 20060619
  13. NEULASTA [Concomitant]
  14. HEPARIN [Concomitant]
     Dosage: 500 UNITS UNK
  15. PROCRIT [Concomitant]
     Dosage: 44,000 UNITS QMO
     Dates: start: 20060227
  16. TAXOTERE [Concomitant]
     Dosage: 100 MG QMO
  17. CATHFLO ACTIVASE [Concomitant]
     Dosage: 2MG QMO
     Dates: start: 20060403, end: 20060508
  18. ARANESP [Concomitant]
     Dosage: 200MG QMO
     Dates: start: 20050906, end: 20060130
  19. ZOCOR [Concomitant]
     Dosage: 20MG QD

REACTIONS (15)
  - ABSCESS [None]
  - ANGINA PECTORIS [None]
  - CHEST DISCOMFORT [None]
  - DIZZINESS [None]
  - DYSPNOEA [None]
  - GASTROOESOPHAGEAL REFLUX DISEASE [None]
  - GINGIVAL SWELLING [None]
  - IMPAIRED HEALING [None]
  - LEUKOCYTOSIS [None]
  - ORTHOSTATIC HYPOTENSION [None]
  - OSTEOMYELITIS CHRONIC [None]
  - OSTEONECROSIS [None]
  - PAIN IN JAW [None]
  - SYNCOPE [None]
  - TOOTH EXTRACTION [None]
